FAERS Safety Report 8615957-2 (Version None)
Quarter: 2012Q3

REPORT INFORMATION
  Report Type: 
  Country: None (occurrence: None)
  Receive Date: 20120823
  Receipt Date: 20120815
  Transmission Date: 20120928
  Serious: Yes (Hospitalization, Disabling, Other)
  Sender: FDA-Public Use
  Company Number: US-MSD-1201USA01459

PATIENT

DRUGS (4)
  1. NORVASC [Concomitant]
  2. FOSAMAX [Suspect]
     Indication: OSTEOPOROSIS
     Dosage: 10 MG, UNK
     Route: 048
     Dates: start: 19960719
  3. FOSAMAX [Suspect]
     Dosage: 70 MG, UNK
     Route: 048
     Dates: start: 20011008
  4. FOSAMAX [Suspect]
     Dosage: 70 MG, UNK
     Route: 048
     Dates: start: 20080425

REACTIONS (32)
  - SYNOVIAL CYST [None]
  - GASTROOESOPHAGEAL REFLUX DISEASE [None]
  - URINARY INCONTINENCE [None]
  - ATELECTASIS [None]
  - SOMNOLENCE [None]
  - SCIATICA [None]
  - SKIN IRRITATION [None]
  - VITAMIN D DEFICIENCY [None]
  - FALL [None]
  - PYREXIA [None]
  - FOREARM FRACTURE [None]
  - FEMUR FRACTURE [None]
  - VITAMIN B12 DEFICIENCY [None]
  - CHEST PAIN [None]
  - CARDIAC MURMUR [None]
  - PAIN IN EXTREMITY [None]
  - BLOOD CHOLESTEROL INCREASED [None]
  - INSOMNIA [None]
  - OSTEOARTHRITIS [None]
  - OSTEOPENIA [None]
  - INTERVERTEBRAL DISC SPACE NARROWING [None]
  - TIBIA FRACTURE [None]
  - CHRONIC OBSTRUCTIVE PULMONARY DISEASE [None]
  - OEDEMA PERIPHERAL [None]
  - UTERINE DISORDER [None]
  - LOW TURNOVER OSTEOPATHY [None]
  - CARDIOMEGALY [None]
  - PALPITATIONS [None]
  - THYROID NEOPLASM [None]
  - MENISCUS LESION [None]
  - OSTEOMA [None]
  - ADVERSE DRUG REACTION [None]
